FAERS Safety Report 24258786 (Version 2)
Quarter: 2025Q2

REPORT INFORMATION
  Report Type: Report from Study
  Country: US (occurrence: US)
  Receive Date: 20240828
  Receipt Date: 20250531
  Transmission Date: 20250717
  Serious: Yes (Life-Threatening, Hospitalization)
  Sender: STEMLINE THERAPEUTICS
  Company Number: US-STEMLINE THERAPEUTICS, INC-2024-STML-US004435

PATIENT

DRUGS (1)
  1. ORSERDU [Suspect]
     Active Substance: ELACESTRANT
     Indication: Product used for unknown indication
     Dosage: 258 MG, DAILY
     Route: 048
     Dates: start: 20240430, end: 20240705

REACTIONS (3)
  - Loss of consciousness [Unknown]
  - Sepsis [Unknown]
  - Cardiac disorder [Unknown]

NARRATIVE: CASE EVENT DATE: 20240705
